FAERS Safety Report 17483670 (Version 1)
Quarter: 2020Q1

REPORT INFORMATION
  Report Type: Spontaneous
  Country: US (occurrence: US)
  Receive Date: 20200301
  Receipt Date: 20200301
  Transmission Date: 20200409
  Serious: Yes (Other)
  Sender: FDA-Public Use
  Company Number: None

PATIENT
  Age: 24 Year
  Sex: Female
  Weight: 87.75 kg

DRUGS (1)
  1. OTEZLA [Suspect]
     Active Substance: APREMILAST
     Indication: PSORIASIS
     Dates: start: 20200215

REACTIONS (4)
  - Dyspnoea [None]
  - Palpitations [None]
  - Chest pain [None]
  - Bundle branch block right [None]

NARRATIVE: CASE EVENT DATE: 20200226
